FAERS Safety Report 8282509-6 (Version None)
Quarter: 2012Q2

REPORT INFORMATION
  Report Type: 
  Country: None (occurrence: None)
  Receive Date: 20120413
  Receipt Date: 20120411
  Transmission Date: 20120825
  Serious: Yes (Death, Hospitalization)
  Sender: FDA-Public Use
  Company Number: FR-PFIZER INC-2012090040

PATIENT
  Age: 59 Year
  Sex: Female

DRUGS (7)
  1. LEPTICUR [Suspect]
     Dosage: 20 MG, 1X/DAY
     Route: 048
     Dates: start: 20111226
  2. LASIX [Suspect]
     Dosage: 20 MG, 1X/DAY
     Route: 048
  3. IBUPROFEN [Suspect]
     Dosage: 200 MG, 2X/DAY
     Dates: start: 20120206
  4. QUETIAPINE [Suspect]
     Dosage: 400 MG, 2X/DAY
     Route: 048
     Dates: start: 20111216
  5. CLONAZEPAM [Suspect]
     Dosage: 2.5 MG/ML.
     Route: 048
  6. LOXAPINE HCL [Suspect]
     Dosage: UNK
     Route: 048
  7. ALDACTONE [Suspect]
     Indication: HYPERTENSION
     Dosage: 25 MG, 1X/DAY
     Route: 048

REACTIONS (4)
  - DYSPNOEA [None]
  - PYREXIA [None]
  - NAUSEA [None]
  - ASTHENIA [None]
